FAERS Safety Report 9741872 (Version 1)
Quarter: 2013Q4

REPORT INFORMATION
  Report Type: Spontaneous
  Country: GB (occurrence: GB)
  Receive Date: 20131210
  Receipt Date: 20131210
  Transmission Date: 20140711
  Serious: No
  Sender: FDA-Public Use
  Company Number: PHFR2013GB007030

PATIENT
  Sex: Male

DRUGS (1)
  1. TASIGNA [Suspect]

REACTIONS (1)
  - Hypertension [Unknown]
